FAERS Safety Report 7239740-8 (Version None)
Quarter: 2011Q1

REPORT INFORMATION
  Report Type: 
  Country: None (occurrence: None)
  Receive Date: 20110122
  Receipt Date: 20101028
  Transmission Date: 20110831
  Serious: No
  Sender: FDA-Public Use
  Company Number: US-ALLERGAN-1013933US

PATIENT
  Age: 66 Year
  Sex: Female

DRUGS (1)
  1. LATISSE [Suspect]
     Indication: PRODUCT USED FOR UNKNOWN INDICATION
     Dosage: 1 GTT, QHS
     Dates: start: 20100826, end: 20100910

REACTIONS (2)
  - CONJUNCTIVITIS [None]
  - WRONG TECHNIQUE IN DRUG USAGE PROCESS [None]
